FAERS Safety Report 12616494 (Version 1)
Quarter: 2016Q3

REPORT INFORMATION
  Report Type: Spontaneous
  Country: GB (occurrence: GB)
  Receive Date: 20160802
  Receipt Date: 20160802
  Transmission Date: 20161109
  Serious: Yes (Life-Threatening)
  Sender: FDA-Public Use
  Company Number: GB-SA-2016SA138625

PATIENT
  Sex: Male
  Weight: 87 kg

DRUGS (13)
  1. ALEMTUZUMAB [Suspect]
     Active Substance: ALEMTUZUMAB
     Indication: T-CELL PROLYMPHOCYTIC LEUKAEMIA
     Route: 041
     Dates: start: 20160706, end: 20160706
  2. CODEINE [Concomitant]
     Active Substance: CODEINE
  3. OMEPRAZOLE. [Concomitant]
     Active Substance: OMEPRAZOLE
  4. METOCLOPRAMIDE. [Concomitant]
     Active Substance: METOCLOPRAMIDE
  5. PETHIDINE [Concomitant]
     Active Substance: MEPERIDINE
  6. ALEMTUZUMAB [Suspect]
     Active Substance: ALEMTUZUMAB
     Indication: T-CELL PROLYMPHOCYTIC LEUKAEMIA
     Route: 041
     Dates: start: 20160711, end: 20160711
  7. ACICLOVIR [Concomitant]
     Active Substance: ACYCLOVIR
  8. ASPIRIN. [Concomitant]
     Active Substance: ASPIRIN
  9. CANDESARTAN [Concomitant]
     Active Substance: CANDESARTAN
  10. ALEMTUZUMAB [Suspect]
     Active Substance: ALEMTUZUMAB
     Indication: T-CELL PROLYMPHOCYTIC LEUKAEMIA
     Route: 041
     Dates: start: 20160708, end: 20160708
  11. COTRIMOXAZOLE [Concomitant]
     Active Substance: SULFAMETHOXAZOLE\TRIMETHOPRIM
  12. PROCHLORPERAZINE. [Concomitant]
     Active Substance: PROCHLORPERAZINE
  13. PARACETAMOL [Concomitant]
     Active Substance: ACETAMINOPHEN

REACTIONS (11)
  - Flushing [Recovering/Resolving]
  - Body temperature increased [Recovering/Resolving]
  - Cardiac disorder [Not Recovered/Not Resolved]
  - Dyspnoea [Recovering/Resolving]
  - Sinus tachycardia [Recovering/Resolving]
  - Feeling hot [Recovering/Resolving]
  - Chills [Recovered/Resolved]
  - Nausea [Recovering/Resolving]
  - Hypertension [Recovering/Resolving]
  - Back pain [Recovered/Resolved]
  - Malaise [Recovering/Resolving]

NARRATIVE: CASE EVENT DATE: 20160706
